FAERS Safety Report 8073024-3 (Version None)
Quarter: 2012Q1

REPORT INFORMATION
  Report Type: 
  Country: None (occurrence: None)
  Receive Date: 20120120
  Receipt Date: 20120104
  Transmission Date: 20120608
  Serious: Yes (Death)
  Sender: FDA-Public Use
  Company Number: 1157127

PATIENT
  Age: 51 Year
  Sex: Male

DRUGS (2)
  1. METHADONE HCL [Suspect]
     Dosage: NOT REPORTED
  2. MORPHINE SULFATE [Suspect]
     Dosage: NOT REPORTED

REACTIONS (2)
  - COMPLETED SUICIDE [None]
  - POISONING [None]
